FAERS Safety Report 8610285-3 (Version None)
Quarter: 2012Q3

REPORT INFORMATION
  Report Type: 
  Country: None (occurrence: None)
  Receive Date: 20120810
  Receipt Date: 20120810
  Transmission Date: 20120928
  Serious: Yes (Other)
  Sender: FDA-Public Use
  Company Number: None

PATIENT
  Age: 35 Year
  Sex: Male
  Weight: 68.0396 kg

DRUGS (1)
  1. VIIBRYD [Suspect]
     Indication: HALLUCINATION, GUSTATORY
     Dosage: 20 MG, DAILY, PO
     Route: 048
     Dates: start: 20120614, end: 20120708

REACTIONS (4)
  - DEREALISATION [None]
  - HALLUCINATION, GUSTATORY [None]
  - DELUSION [None]
  - PARANOIA [None]
